FAERS Safety Report 7966820-1 (Version None)
Quarter: 2011Q4

REPORT INFORMATION
  Report Type: 
  Country: None (occurrence: None)
  Receive Date: 20111209
  Receipt Date: 20111207
  Transmission Date: 20120403
  Serious: Yes (Other)
  Sender: FDA-Public Use
  Company Number: JP-ACCORD-011574

PATIENT

DRUGS (3)
  1. NEDAPLATIN [Suspect]
     Indication: NON-SMALL CELL LUNG CANCER
     Dosage: INFUSION OVER 60 MIN ON DAY 1
     Route: 041
  2. GEMCITABINE [Suspect]
     Indication: NON-SMALL CELL LUNG CANCER
     Dosage: INFUSION IN 30 MIN ON DAYS 1 AND 8
     Route: 041
  3. DEXAMETHASONE [Concomitant]

REACTIONS (1)
  - CEREBRAL INFARCTION [None]
